FAERS Safety Report 17283762 (Version 2)
Quarter: 2020Q1

REPORT INFORMATION
  Report Type: Spontaneous
  Country: JP (occurrence: JP)
  Receive Date: 20200117
  Receipt Date: 20200212
  Transmission Date: 20200409
  Serious: Yes (Death, Other)
  Sender: FDA-Public Use
  Company Number: JP-GILEAD-2020-0446083

PATIENT
  Age: 78 Year
  Sex: Male

DRUGS (11)
  1. EPCLUSA [Suspect]
     Active Substance: SOFOSBUVIR\VELPATASVIR
     Indication: HEPATIC CIRRHOSIS
     Dosage: 1 DOSAGE FORM, QD
     Route: 048
     Dates: start: 20191120, end: 20200108
  2. RIFAXIMIN. [Concomitant]
     Active Substance: RIFAXIMIN
     Indication: HEPATIC ENCEPHALOPATHY
  3. MAGMITT [Concomitant]
     Active Substance: MAGNESIUM OXIDE
  4. CARNITINE [Concomitant]
     Active Substance: CARNITINE
     Indication: HEPATIC ENCEPHALOPATHY
  5. FUROSEMIDE. [Concomitant]
     Active Substance: FUROSEMIDE
  6. REMITCH [Concomitant]
     Active Substance: NALFURAFINE HYDROCHLORIDE
     Indication: PRURITUS
  7. PIARLE [Concomitant]
     Active Substance: LACTULOSE
  8. SAMSCA [Concomitant]
     Active Substance: TOLVAPTAN
  9. URSODEOXYCHOL [Concomitant]
  10. EPCLUSA [Suspect]
     Active Substance: SOFOSBUVIR\VELPATASVIR
     Indication: HEPATITIS C
  11. LIVACT [AMINO ACIDS NOS] [Concomitant]

REACTIONS (2)
  - Bacterial sepsis [Fatal]
  - Ammonia increased [Recovering/Resolving]

NARRATIVE: CASE EVENT DATE: 201912
